FAERS Safety Report 12351308 (Version 1)
Quarter: 2016Q2

REPORT INFORMATION
  Report Type: Spontaneous
  Country: US (occurrence: None)
  Receive Date: 20160509
  Receipt Date: 20160509
  Transmission Date: 20160815
  Serious: No
  Sender: FDA-Public Use
  Company Number: None

PATIENT
  Age: 69 Year
  Sex: Male

DRUGS (16)
  1. GRAPE SEED [Concomitant]
  2. COQ10 [Concomitant]
     Active Substance: UBIDECARENONE
  3. SPRYCEL [Suspect]
     Active Substance: DASATINIB
     Indication: LEUKAEMIA
     Route: 048
     Dates: start: 20130808
  4. IMITREX [Suspect]
     Active Substance: SUMATRIPTAN SUCCINATE
  5. FISH OIL [Concomitant]
     Active Substance: FISH OIL
  6. CRESTOR [Concomitant]
     Active Substance: ROSUVASTATIN CALCIUM
  7. LIPITOR [Concomitant]
     Active Substance: ATORVASTATIN CALCIUM
  8. FINASTERIDE. [Concomitant]
     Active Substance: FINASTERIDE
  9. GLUCOS/CHOND [Concomitant]
  10. MULTIVITAMIN [Concomitant]
     Active Substance: VITAMINS
  11. FLAX SEED [Concomitant]
     Active Substance: FLAX SEED
  12. CINNAMON. [Concomitant]
     Active Substance: CINNAMON
  13. OXYBUTININ [Concomitant]
     Active Substance: OXYBUTYNIN
  14. VITAMIN C [Concomitant]
     Active Substance: ASCORBIC ACID
  15. ATENOLOL. [Concomitant]
     Active Substance: ATENOLOL
  16. ASPIRIN. [Concomitant]
     Active Substance: ASPIRIN

REACTIONS (6)
  - Cough [None]
  - Respiratory tract congestion [None]
  - Pulmonary function test decreased [None]
  - Drug interaction [None]
  - Pneumonitis [None]
  - Upper-airway cough syndrome [None]

NARRATIVE: CASE EVENT DATE: 201512
